FAERS Safety Report 4625509-7 (Version None)
Quarter: 2005Q2

REPORT INFORMATION
  Report Type: 
  Country: None (occurrence: None)
  Receive Date: 20050401
  Receipt Date: 20050301
  Transmission Date: 20051028
  Serious: Yes (Disabling)
  Sender: FDA-Public Use
  Company Number: CA-ABBOTT-05P-028-0292439-00

PATIENT
  Sex: Male
  Weight: 99 kg

DRUGS (14)
  1. HUMIRA [Suspect]
     Indication: PSORIATIC ARTHROPATHY
     Dosage: 40
     Route: 058
     Dates: start: 20040105, end: 20050214
  2. FOLIC ACID [Concomitant]
     Indication: VITAMIN SUPPLEMENTATION
     Dates: start: 19980414
  3. OMEPRAZOLE [Concomitant]
     Indication: ABDOMINAL PAIN UPPER
     Dates: start: 19980414
  4. TOLTERODINE [Concomitant]
     Indication: HYPERTONIC BLADDER
     Dates: start: 20020601
  5. MULTI-VITAMINS [Concomitant]
     Indication: VITAMIN SUPPLEMENTATION
     Dates: start: 20030201
  6. ASCORBIC ACID [Concomitant]
     Indication: VITAMIN SUPPLEMENTATION
     Dates: start: 20030201
  7. GLUCOSAMINE [Concomitant]
     Indication: PSORIATIC ARTHROPATHY
     Dates: start: 20030201
  8. TOCOPHEROL CONCENTRATE CAP [Concomitant]
     Indication: VITAMIN SUPPLEMENTATION
     Dates: start: 20030201
  9. CALCIUM W/MAGNESIUM [Concomitant]
     Indication: MINERAL SUPPLEMENTATION
     Dates: start: 20030201
  10. ACETYLSALICYLIC ACID SRT [Concomitant]
     Indication: ARTERIOSCLEROTIC RETINOPATHY
     Dates: start: 20031012
  11. METHOTREXATE [Concomitant]
     Indication: PSORIATIC ARTHROPATHY
     Dates: start: 20030408
  12. CELECOXIB [Concomitant]
     Indication: PSORIATIC ARTHROPATHY
     Dates: start: 20010522, end: 20040328
  13. GALANTAMINE [Concomitant]
     Indication: AMNESIA
     Dates: start: 20040107
  14. CELECOXIB [Concomitant]
     Dates: start: 20040329, end: 20040510

REACTIONS (10)
  - AMNESIA [None]
  - CEREBROVASCULAR DISORDER [None]
  - COORDINATION ABNORMAL [None]
  - DEMENTIA [None]
  - DEMYELINATING POLYNEUROPATHY [None]
  - DILATATION VENTRICULAR [None]
  - DIZZINESS [None]
  - PARKINSON'S DISEASE [None]
  - URINARY INCONTINENCE [None]
  - VASCULAR ENCEPHALOPATHY [None]
